FAERS Safety Report 5352025-X (Version None)
Quarter: 2007Q2

REPORT INFORMATION
  Report Type: 
  Country: None (occurrence: None)
  Receive Date: 20070611
  Receipt Date: 20070606
  Transmission Date: 20071010
  Serious: Yes (Life-Threatening, Hospitalization)
  Sender: FDA-Public Use
  Company Number: PHEH2007US08430

PATIENT
  Sex: Male
  Weight: 122.45 kg

DRUGS (8)
  1. LOTREL [Concomitant]
  2. DIOVAN [Concomitant]
  3. TEKTURNA [Suspect]
     Indication: HYPERTENSION
     Dosage: 300 MG, QD
     Route: 048
  4. LASIX [Concomitant]
  5. COUMADIN [Concomitant]
  6. AMIODARONE HCL [Concomitant]
  7. DIGOXIN [Concomitant]
     Dosage: 0.125 MG, UNK
  8. ANTI-DIABETICS [Concomitant]

REACTIONS (3)
  - ASTHENIA [None]
  - BLOOD POTASSIUM INCREASED [None]
  - BRADYCARDIA [None]
